FAERS Safety Report 21285563 (Version 1)
Quarter: 2022Q3

REPORT INFORMATION
  Report Type: Spontaneous
  Country: US (occurrence: None)
  Receive Date: 20220901
  Receipt Date: 20220901
  Transmission Date: 20221026
  Serious: Yes (Hospitalization)
  Sender: FDA-Public Use
  Company Number: None

PATIENT
  Sex: Male

DRUGS (9)
  1. STELARA [Suspect]
     Active Substance: USTEKINUMAB
     Indication: Crohn^s disease
     Dosage: 90 MG/ML SUBCUTANEOUS??INJECT 1 ML (90 MG) INTO THE SKIN EVERY EIGHT WEEKS.
     Route: 058
     Dates: start: 20220603
  2. ALBUTEROL [Concomitant]
  3. BUDESONIDE [Concomitant]
     Active Substance: BUDESONIDE
  4. HYOSCYAMINE [Concomitant]
     Active Substance: HYOSCYAMINE
  5. LIDOCAINE [Concomitant]
     Active Substance: LIDOCAINE
  6. METHYLPREDNISOLONE [Concomitant]
     Active Substance: METHYLPREDNISOLONE
  7. ONDANSETRON [Concomitant]
     Active Substance: ONDANSETRON
  8. TRIAMCINOLON [Concomitant]
  9. TYLENOL [Concomitant]
     Active Substance: ACETAMINOPHEN

REACTIONS (1)
  - Gastrointestinal infection [None]
